FAERS Safety Report 23907218 (Version 2)
Quarter: 2024Q3

REPORT INFORMATION
  Report Type: Spontaneous
  Country: FR (occurrence: FR)
  Receive Date: 20240528
  Receipt Date: 20240807
  Transmission Date: 20241016
  Serious: Yes (Other)
  Sender: CIPLA
  Company Number: FR-AFSSAPS-NT2024000538

PATIENT

DRUGS (1)
  1. RIVAROXABAN [Suspect]
     Active Substance: RIVAROXABAN
     Indication: Cardiomyopathy
     Dosage: 20 MILLIGRAM, QD (1 TABLET PER DAY), COATED TABLET
     Route: 048
     Dates: start: 20230901, end: 20240419

REACTIONS (3)
  - Retinal detachment [Recovering/Resolving]
  - Vitreous floaters [Recovering/Resolving]
  - Visual impairment [Recovering/Resolving]

NARRATIVE: CASE EVENT DATE: 20230901
